FAERS Safety Report 4503408-9 (Version None)
Quarter: 2004Q4

REPORT INFORMATION
  Report Type: 
  Country: None (occurrence: None)
  Receive Date: 20041117
  Receipt Date: 20041103
  Transmission Date: 20050328
  Serious: Yes (Other)
  Sender: FDA-Public Use
  Company Number: IT-GLAXOSMITHKLINE-B0357042A

PATIENT
  Age: 48 Year
  Sex: Female

DRUGS (2)
  1. ZYBAN [Suspect]
     Indication: TOBACCO ABUSE
     Dosage: 300MG PER DAY
     Route: 048
     Dates: start: 20041006, end: 20041014
  2. NICORETTE [Concomitant]
     Indication: TOBACCO ABUSE
     Route: 048

REACTIONS (6)
  - ANXIETY [None]
  - DISTURBANCE IN ATTENTION [None]
  - FEAR [None]
  - HEADACHE [None]
  - ILL-DEFINED DISORDER [None]
  - PSYCHOTIC DISORDER [None]
